FAERS Safety Report 6647877-7 (Version None)
Quarter: 2010Q1

REPORT INFORMATION
  Report Type: 
  Country: None (occurrence: None)
  Receive Date: 20100318
  Receipt Date: 20100305
  Transmission Date: 20100710
  Serious: Yes (Hospitalization, Other)
  Sender: FDA-Public Use
  Company Number: 007779

PATIENT
  Age: 60 Year
  Sex: Female

DRUGS (6)
  1. CERTOLIZUMAB PEGOL(CERTOLIZUMAB PEGOL) INJECTION [Suspect]
     Indication: RHEUMATOID ARTHRITIS
     Dosage: SUBCUTANEOUS
     Route: 058
     Dates: start: 20081224, end: 20100216
  2. METHOTREXATE [Concomitant]
  3. FOLIC ACID [Concomitant]
  4. PRENNISOLONE (PREDNISOLONE) [Concomitant]
  5. LOXOPROFEN SODIUM (LOXOPROFEN SODIUM) [Concomitant]
  6. ISONIAZID [Concomitant]

REACTIONS (1)
  - OVARIAN NEOPLASM [None]
